FAERS Safety Report 5755013-4 (Version None)
Quarter: 2008Q2

REPORT INFORMATION
  Report Type: 
  Country: None (occurrence: None)
  Receive Date: 20080527
  Receipt Date: 20080516
  Transmission Date: 20081010
  Serious: Yes (Hospitalization)
  Sender: FDA-Public Use
  Company Number: CERZ-1000084

PATIENT
  Age: 60 Year
  Sex: Female

DRUGS (1)
  1. CEREZYME [Suspect]
     Indication: GAUCHER'S DISEASE
     Dosage: 60 U, Q2W, INTRAVENOUS
     Route: 042
     Dates: start: 20070801

REACTIONS (4)
  - CHAPPED LIPS [None]
  - CONTUSION [None]
  - FALL [None]
  - WRIST FRACTURE [None]
